FAERS Safety Report 6540571-2 (Version None)
Quarter: 2010Q1

REPORT INFORMATION
  Report Type: 
  Country: None (occurrence: None)
  Receive Date: 20100113
  Receipt Date: 20100106
  Transmission Date: 20100710
  Serious: Yes (Other)
  Sender: FDA-Public Use
  Company Number: 2010SP001479

PATIENT
  Age: 61 Year
  Sex: Male

DRUGS (2)
  1. PEG-INTRON [Suspect]
     Indication: HEPATITIS C
     Dosage: SC
     Route: 058
     Dates: start: 20080501
  2. REBETOL [Suspect]
     Indication: HEPATITIS C
     Dosage: PO ; PO
     Route: 048
     Dates: start: 20080501

REACTIONS (5)
  - ABDOMINAL DISTENSION [None]
  - ANAEMIA [None]
  - ASCITES [None]
  - MALAISE [None]
  - OEDEMA PERIPHERAL [None]
